FAERS Safety Report 9814392 (Version 1)
Quarter: 2014Q1

REPORT INFORMATION
  Report Type: Spontaneous
  Country: GB (occurrence: GB)
  Receive Date: 20140113
  Receipt Date: 20140113
  Transmission Date: 20141002
  Serious: Yes (Hospitalization, Disabling, Other)
  Sender: FDA-Public Use
  Company Number: GB-TEVA-455328ISR

PATIENT
  Age: 83 Year
  Sex: Male

DRUGS (4)
  1. DOXAZOSIN [Suspect]
     Indication: HYPERTENSION
     Dosage: 8 MILLIGRAM DAILY;
     Route: 048
     Dates: start: 200610, end: 20131209
  2. ASPIRIN [Concomitant]
     Indication: ANGINA PECTORIS
     Dosage: 75 MILLIGRAM DAILY;
     Route: 048
  3. CO-AMILOFRUSE [Concomitant]
     Indication: CARDIAC FAILURE
     Dosage: 1 DOSAGE FORMS DAILY; 1 DOSAGE FORM: AMILORIDE HYDROCHLORIDE 5 MG + FRUSEMIDE 40MG
     Route: 048
     Dates: end: 201312
  4. SIMVASTATIN [Concomitant]
     Indication: ANGINA PECTORIS
     Dosage: 20 MILLIGRAM DAILY; AT NIGHT.
     Route: 048

REACTIONS (2)
  - Tremor [Recovered/Resolved]
  - Physical disability [Recovered/Resolved]
